FAERS Safety Report 12051078 (Version 1)
Quarter: 2016Q1

REPORT INFORMATION
  Report Type: Other
  Country: US (occurrence: US)
  Receive Date: 20160208
  Receipt Date: 20160208
  Transmission Date: 20160526
  Serious: Yes (Other)
  Sender: FDA-Public Use
  Company Number: US-GUTHY-RENKER LLC-1047497

PATIENT
  Age: 19 Year
  Sex: Female

DRUGS (1)
  1. IT COSMETICS BYE BYE FOUNDATION SPF 50 [Suspect]
     Active Substance: TITANIUM DIOXIDE\ZINC OXIDE
     Indication: PROPHYLAXIS AGAINST SOLAR RADIATION
     Route: 061
     Dates: start: 20160114, end: 20160117

REACTIONS (6)
  - Pruritus [None]
  - Dyspnoea [Recovering/Resolving]
  - Swelling face [None]
  - Maternal exposure during pregnancy [None]
  - Rash [None]
  - Erythema [None]

NARRATIVE: CASE EVENT DATE: 20160117
